FAERS Safety Report 7916750-6 (Version None)
Quarter: 2011Q4

REPORT INFORMATION
  Report Type: 
  Country: None (occurrence: None)
  Receive Date: 20111116
  Receipt Date: 20111108
  Transmission Date: 20120403
  Serious: Yes (Hospitalization)
  Sender: FDA-Public Use
  Company Number: US-BAYER-2011-028423

PATIENT
  Age: 43 Year
  Sex: Female
  Weight: 73.469 kg

DRUGS (16)
  1. YAZ [Suspect]
     Indication: CONTRACEPTION
     Dosage: UNK
     Dates: start: 20060701, end: 20061201
  2. PROBIOTICS [Concomitant]
     Dosage: UNK UNK, QD
     Route: 048
     Dates: start: 20090814, end: 20090903
  3. VERAMYST [Concomitant]
     Dosage: UNK UNK, QD
     Route: 048
     Dates: start: 20090601, end: 20101201
  4. FLURBIPROFEN [Concomitant]
     Dosage: 100 MG, UNK
     Route: 048
     Dates: start: 20090901
  5. FENOFIBRATE [Concomitant]
     Dosage: 160 MG, QD
     Route: 048
     Dates: start: 20090801
  6. MIDRIN [Concomitant]
     Dosage: UNK UNK, BID
     Route: 048
     Dates: start: 20081201, end: 20090901
  7. AMOXICILLIN [Concomitant]
     Dosage: 500 MG, UNK
     Route: 048
     Dates: start: 20090701
  8. MULTI-VITAMINS [Concomitant]
     Dosage: UNK UNK, QD
     Route: 048
     Dates: start: 20090814, end: 20090903
  9. BIOTIN [Concomitant]
     Dosage: UNK
     Route: 048
     Dates: start: 20090814, end: 20090903
  10. CALCIUM [Concomitant]
     Dosage: 500 MG, QD
     Route: 048
     Dates: start: 20090814, end: 20090903
  11. YAZ [Suspect]
     Dosage: UNK
     Dates: start: 20070201, end: 20090901
  12. DICHLORALPHENZON W/ISOMETHEPTENE [Concomitant]
     Dosage: UNK
     Dates: start: 20090701
  13. CLARITIN [Concomitant]
     Dosage: 10 MG, QD
     Route: 048
     Dates: start: 20090901
  14. IBUPROFEN [Concomitant]
     Dosage: 800 MG, PRN
     Route: 048
     Dates: start: 20090901
  15. VITAMIN D [Concomitant]
     Dosage: UNK UNK, QD
     Dates: start: 20090814, end: 20090903
  16. IODINE [Concomitant]
     Dosage: UNK
     Route: 048
     Dates: start: 20090814, end: 20090903

REACTIONS (6)
  - INJURY [None]
  - CHEST PAIN [None]
  - DEEP VEIN THROMBOSIS [None]
  - PAIN [None]
  - DYSPNOEA [None]
  - PULMONARY EMBOLISM [None]
